FAERS Safety Report 4634398-6 (Version None)
Quarter: 2005Q2

REPORT INFORMATION
  Report Type: 
  Country: None (occurrence: None)
  Receive Date: 20050412
  Receipt Date: 20050401
  Transmission Date: 20051028
  Serious: Yes (Other)
  Sender: FDA-Public Use
  Company Number: 2005054917

PATIENT
  Age: 57 Year
  Sex: Female
  Weight: 99.3377 kg

DRUGS (6)
  1. CELECOXIB (CELECOXIB) [Suspect]
     Indication: INFLAMMATION
     Dosage: 200 MG (200 MG, 1 IN 1 D), ORAL
     Route: 048
  2. MELOXICAM [Suspect]
     Indication: INFLAMMATION
  3. ALL OTHER THERAPEUTIC PRODUCTS (ALL OTHER THERAPEUTIC PRODUCTS) [Concomitant]
  4. ESOMEPRAZOLE (ESOMEPRAZOLE) [Concomitant]
  5. TOCOPHEROL (TOCOPHEROL) [Concomitant]
  6. ASPIRIN [Concomitant]

REACTIONS (2)
  - MENISCUS LESION [None]
  - SWELLING [None]
